FAERS Safety Report 5229246-X (Version None)
Quarter: 2007Q1

REPORT INFORMATION
  Report Type: 
  Country: None (occurrence: None)
  Receive Date: 20061201
  Receipt Date: 20060908
  Transmission Date: 20070707
  Serious: No
  Sender: FDA-Public Use
  Company Number: US200609002426

PATIENT
  Age: 64 Year
  Sex: Male

DRUGS (1)
  1. CYMBALTA [Suspect]
     Indication: FIBROMYALGIA
     Dosage: 20 MG, 2/D
     Dates: start: 20060901

REACTIONS (4)
  - DEPRESSION [None]
  - EJACULATION FAILURE [None]
  - FRUSTRATION [None]
  - NAUSEA [None]
